FAERS Safety Report 19519508 (Version 1)
Quarter: 2021Q3

REPORT INFORMATION
  Report Type: Report from Study
  Country: US (occurrence: US)
  Receive Date: 20210712
  Receipt Date: 20210712
  Transmission Date: 20211014
  Serious: Yes (Hospitalization)
  Sender: FDA-Public Use
  Company Number: US-ALNYLAM PHARMACEUTICALS, INC.-ALN-2021-001621

PATIENT

DRUGS (1)
  1. ONPATTRO [Suspect]
     Active Substance: PATISIRAN SODIUM
     Indication: PRODUCT USED FOR UNKNOWN INDICATION
     Dosage: UNK
     Route: 065
     Dates: start: 20190826

REACTIONS (5)
  - Cardiac ablation [Unknown]
  - Intentional dose omission [Unknown]
  - Walking aid user [Unknown]
  - Atrial flutter [Unknown]
  - Fluid overload [Recovering/Resolving]

NARRATIVE: CASE EVENT DATE: 20210524
